FAERS Safety Report 5530501-4 (Version None)
Quarter: 2007Q4

REPORT INFORMATION
  Report Type: 
  Country: None (occurrence: None)
  Receive Date: 20071127
  Receipt Date: 20071127
  Transmission Date: 20080405
  Serious: Yes (Hospitalization)
  Sender: FDA-Public Use
  Company Number: None

PATIENT
  Age: 60 Year
  Sex: Female
  Weight: 77.1115 kg

DRUGS (2)
  1. ACTOS [Suspect]
     Indication: DIABETES MELLITUS
     Dosage: 30 MG DAILEY PO
     Route: 048
     Dates: start: 20030101, end: 20070101
  2. ACTOS [Suspect]
     Indication: DIABETES MELLITUS
     Dosage: 30 MG DAILEY PO
     Route: 048
     Dates: start: 20030101, end: 20070101

REACTIONS (7)
  - FIBULA FRACTURE [None]
  - HAND FRACTURE [None]
  - HUMERUS FRACTURE [None]
  - JOINT DISLOCATION [None]
  - RADIUS FRACTURE [None]
  - TIBIA FRACTURE [None]
  - ULNA FRACTURE [None]
